FAERS Safety Report 7261077-1 (Version None)
Quarter: 2011Q1

REPORT INFORMATION
  Report Type: 
  Country: None (occurrence: None)
  Receive Date: 20110130
  Receipt Date: 20101228
  Transmission Date: 20110831
  Serious: No
  Sender: FDA-Public Use
  Company Number: US-ABBOTT-10P-163-0694208-00

PATIENT
  Age: 63 Year
  Sex: Female

DRUGS (11)
  1. MULTI-VITAMIN [Concomitant]
     Indication: PRODUCT USED FOR UNKNOWN INDICATION
  2. RUWASA [Concomitant]
     Indication: PRODUCT USED FOR UNKNOWN INDICATION
     Dosage: AT NIGH
  3. HUMIRA [Suspect]
     Indication: CROHN'S DISEASE
     Dates: start: 20090701
  4. OMEPRAZOLE [Concomitant]
     Indication: PRODUCT USED FOR UNKNOWN INDICATION
  5. LOVAZA [Concomitant]
     Indication: PRODUCT USED FOR UNKNOWN INDICATION
  6. CONDROITIN JOINT RELIEF FORMULA [Concomitant]
     Indication: PRODUCT USED FOR UNKNOWN INDICATION
  7. CANASSA [Concomitant]
     Indication: PRODUCT USED FOR UNKNOWN INDICATION
     Dosage: ALTERNATE NIGHTS WITH RUWASA
  8. MERCAPTOTURINE 6MP [Concomitant]
     Indication: PRODUCT USED FOR UNKNOWN INDICATION
  9. TRAMADOL HCL [Concomitant]
     Indication: PAIN
  10. CALCIUM APPETITE PLUS [Concomitant]
     Indication: PRODUCT USED FOR UNKNOWN INDICATION
  11. ACIDOPHILUS MULTI PROBIOTIC [Concomitant]
     Indication: PRODUCT USED FOR UNKNOWN INDICATION

REACTIONS (3)
  - LUNG INFECTION [None]
  - RASH [None]
  - MUSCULOSKELETAL CHEST PAIN [None]
